FAERS Safety Report 4854674-1 (Version None)
Quarter: 2005Q4

REPORT INFORMATION
  Report Type: 
  Country: None (occurrence: None)
  Receive Date: 20051214
  Receipt Date: 20051214
  Transmission Date: 20060501
  Serious: Yes (Death)
  Sender: FDA-Public Use
  Company Number: None

PATIENT
  Age: 70 Year
  Sex: Male
  Weight: 79.198 kg

DRUGS (25)
  1. INFLIXIMAB 100MG CENTOCOR [Suspect]
     Indication: RHEUMATOID ARTHRITIS
     Dosage: 400MG  OVER 120 MIN  IV DRIP
     Route: 041
     Dates: start: 20050826, end: 20050826
  2. ALBUTEROL [Concomitant]
  3. COUMADIN [Concomitant]
  4. AMITRIPTYLINE HCL [Concomitant]
  5. BISACODYL [Concomitant]
  6. AMOXICILLIN/CLAVULANATE -AUGMENTIN- [Concomitant]
  7. ENOXAPARIN SODIUM [Concomitant]
  8. FERROUS SULFATE TAB [Concomitant]
  9. FINASTERIDE [Concomitant]
  10. EMULSION [Concomitant]
  11. FOLIC ACID [Concomitant]
  12. FUROSEMIDE [Concomitant]
  13. LACTULOSE [Concomitant]
  14. GLIPIZIDE [Concomitant]
  15. METOPROLOL TARTRATE [Concomitant]
  16. METOPROLOL [Concomitant]
  17. NPH INSULIN [Concomitant]
  18. OMEPRAZOLE [Concomitant]
  19. IPRATROPIUM BROMIDE [Concomitant]
  20. OYSTER SHELL CALCIUM [Concomitant]
  21. RISPERIDONE [Concomitant]
  22. SODIUM BICARBONATE [Concomitant]
  23. CEFTAZIDIME [Concomitant]
  24. CIPRO [Concomitant]
  25. DOCUSATE SOD [Concomitant]

REACTIONS (25)
  - ANAEMIA [None]
  - BLOOD GLUCOSE DECREASED [None]
  - BLOOD URINE PRESENT [None]
  - BODY TEMPERATURE INCREASED [None]
  - CHEST X-RAY ABNORMAL [None]
  - CONFUSIONAL STATE [None]
  - CONSTIPATION [None]
  - CULTURE URINE POSITIVE [None]
  - DECREASED APPETITE [None]
  - DEEP VEIN THROMBOSIS [None]
  - DEPRESSED LEVEL OF CONSCIOUSNESS [None]
  - DYSPEPSIA [None]
  - GASTROINTESTINAL DISORDER [None]
  - GASTROINTESTINAL OBSTRUCTION [None]
  - HEADACHE [None]
  - ILEUS [None]
  - INTERNATIONAL NORMALISED RATIO INCREASED [None]
  - NAUSEA [None]
  - RENAL IMPAIRMENT [None]
  - STAPHYLOCOCCAL INFECTION [None]
  - URINARY SYSTEM X-RAY ABNORMAL [None]
  - URINARY TRACT INFECTION [None]
  - URINARY TRACT INFECTION FUNGAL [None]
  - VOMITING [None]
  - WHEEZING [None]
